FAERS Safety Report 5497098-9 (Version None)
Quarter: 2007Q4

REPORT INFORMATION
  Report Type: 
  Country: None (occurrence: None)
  Receive Date: 20071025
  Receipt Date: 20071022
  Transmission Date: 20080405
  Serious: Yes (Hospitalization, Other)
  Sender: FDA-Public Use
  Company Number: JP-ASTRAZENECA-2007AP06653

PATIENT
  Age: 70 Year
  Sex: Male

DRUGS (4)
  1. DIPRIVAN [Suspect]
     Indication: GENERAL ANAESTHESIA
     Route: 042
     Dates: start: 20070401, end: 20070401
  2. FENTANYL [Concomitant]
     Dosage: DOSE UNKNOWN
     Route: 042
     Dates: start: 20070401, end: 20070401
  3. FENTANYL [Concomitant]
     Dosage: DOSE UNKNOWN
     Route: 008
     Dates: start: 20070401, end: 20070401
  4. DORMICUM [Concomitant]
     Dosage: 1A/DAY
     Route: 042
     Dates: start: 20070401, end: 20070401

REACTIONS (1)
  - DELAYED RECOVERY FROM ANAESTHESIA [None]
